FAERS Safety Report 14825111 (Version 1)
Quarter: 2018Q2

REPORT INFORMATION
  Report Type: Spontaneous
  Country: IT (occurrence: IT)
  Receive Date: 20180430
  Receipt Date: 20180430
  Transmission Date: 20180711
  Serious: Yes (Hospitalization)
  Sender: FDA-Public Use
  Company Number: IT-JNJFOC-20180422366

PATIENT
  Age: 70 Year
  Sex: Male

DRUGS (4)
  1. THIOCOLCHICOSIDE [Suspect]
     Active Substance: THIOCOLCHICOSIDE
     Indication: SCIATICA
     Route: 030
     Dates: start: 20180308, end: 20180401
  2. IBUPROFEN. [Suspect]
     Active Substance: IBUPROFEN
     Indication: SCIATICA
     Route: 048
     Dates: start: 20180308, end: 20180401
  3. DICLOFENAC [Suspect]
     Active Substance: DICLOFENAC
     Indication: SCIATICA
     Route: 030
     Dates: start: 20180308, end: 20180401
  4. IBUPROFEN. [Suspect]
     Active Substance: IBUPROFEN
     Route: 048

REACTIONS (4)
  - Gastric ulcer [Recovered/Resolved with Sequelae]
  - Melaena [Recovered/Resolved with Sequelae]
  - Drug interaction [Recovered/Resolved with Sequelae]
  - Anaemia [Recovered/Resolved with Sequelae]

NARRATIVE: CASE EVENT DATE: 20180401
